FAERS Safety Report 9742644 (Version 1)
Quarter: 2013Q4

REPORT INFORMATION
  Report Type: Spontaneous
  Country: US (occurrence: US)
  Receive Date: 20131210
  Receipt Date: 20131210
  Transmission Date: 20140711
  Serious: No
  Sender: FDA-Public Use
  Company Number: US-GILEAD-2009-0025204

PATIENT
  Sex: Female
  Weight: 82.55 kg

DRUGS (16)
  1. LETAIRIS [Suspect]
     Indication: PULMONARY ARTERIAL HYPERTENSION
     Route: 048
     Dates: start: 20091010
  2. FERROUS SULFATE [Concomitant]
  3. ASPIRIN [Concomitant]
  4. CELEBREX [Concomitant]
  5. AVANDIA [Concomitant]
  6. LASIX [Concomitant]
  7. ALBUTEROL [Concomitant]
  8. SYNTHROID [Concomitant]
  9. LIPITOR [Concomitant]
  10. METFORMIN [Concomitant]
  11. GLYBURIDE [Concomitant]
  12. LORTAB [Concomitant]
  13. PREVACID [Concomitant]
  14. OXYGEN [Concomitant]
  15. BYETTA [Concomitant]
  16. ALTACE [Concomitant]

REACTIONS (1)
  - Local swelling [Unknown]
